FAERS Safety Report 13096847 (Version 1)
Quarter: 2017Q1

REPORT INFORMATION
  Report Type: Spontaneous
  Country: US (occurrence: US)
  Receive Date: 20170106
  Receipt Date: 20170106
  Transmission Date: 20170428
  Serious: No
  Sender: FDA-Public Use
  Company Number: None

PATIENT
  Age: 33 Year
  Sex: Male
  Weight: 110.25 kg

DRUGS (7)
  1. CYMBALTA [Concomitant]
     Active Substance: DULOXETINE HYDROCHLORIDE
  2. ARIPIPRAZOLE AMNEAL [Suspect]
     Active Substance: ARIPIPRAZOLE
     Indication: MAJOR DEPRESSION
     Route: 048
     Dates: start: 20161024, end: 20161114
  3. ARIPIPRAZOLE AMNEAL [Suspect]
     Active Substance: ARIPIPRAZOLE
     Indication: TRISOMY 21
     Route: 048
     Dates: start: 20161024, end: 20161114
  4. ARIPIPRAZOLE APOTEX [Suspect]
     Active Substance: ARIPIPRAZOLE
     Indication: MAJOR DEPRESSION
     Route: 048
     Dates: start: 20161117, end: 20170103
  5. ARIPIPRAZOLE APOTEX [Suspect]
     Active Substance: ARIPIPRAZOLE
     Indication: TRISOMY 21
     Route: 048
     Dates: start: 20161117, end: 20170103
  6. HALDOL [Concomitant]
     Active Substance: HALOPERIDOL
  7. DIAZEPAM. [Concomitant]
     Active Substance: DIAZEPAM

REACTIONS (7)
  - Depression [None]
  - Seizure [None]
  - Crying [None]
  - Dyspnoea [None]
  - Product substitution issue [None]
  - Agitation [None]
  - Oxygen saturation decreased [None]

NARRATIVE: CASE EVENT DATE: 20161117
